FAERS Safety Report 5240400-3 (Version None)
Quarter: 2007Q1

REPORT INFORMATION
  Report Type: 
  Country: None (occurrence: None)
  Receive Date: 20061208
  Receipt Date: 20050324
  Transmission Date: 20070707
  Serious: Yes (Other)
  Sender: FDA-Public Use
  Company Number: 2006UW05254

PATIENT
  Age: 85 Year
  Sex: Female
  Weight: 88.45 kg

DRUGS (7)
  1. CRESTOR [Suspect]
     Indication: BLOOD CHOLESTEROL INCREASED
     Dosage: 10 MG PO
     Route: 048
  2. NIASPAN [Concomitant]
  3. PRANDIN [Concomitant]
  4. ADALAT [Concomitant]
  5. NEURONTIN [Concomitant]
  6. COUMADIN [Concomitant]
  7. ZOMETA [Concomitant]

REACTIONS (4)
  - DISORIENTATION [None]
  - DIZZINESS [None]
  - GAIT DISTURBANCE [None]
  - NECK PAIN [None]
